FAERS Safety Report 18533426 (Version 1)
Quarter: 2020Q4

REPORT INFORMATION
  Report Type: Spontaneous
  Country: NG (occurrence: NG)
  Receive Date: 20201118
  Receipt Date: 20201118
  Transmission Date: 20210114
  Serious: Yes (Other)
  Sender: FDA-Public Use
  Company Number: None

PATIENT
  Age: 24 Year
  Sex: Female
  Weight: 41 kg

DRUGS (1)
  1. PROCAINE PENICILLIN [Suspect]
     Active Substance: PENICILLIN G PROCAINE
     Indication: FUNGAL INFECTION
     Dosage: ?          QUANTITY:2 INJECTION(S);?
     Route: 030
     Dates: start: 20201031, end: 20201105

REACTIONS (3)
  - Tinnitus [None]
  - Heart rate increased [None]
  - Dizziness [None]

NARRATIVE: CASE EVENT DATE: 20200511
